FAERS Safety Report 18279226 (Version 2)
Quarter: 2020Q3

REPORT INFORMATION
  Report Type: Spontaneous
  Country: US (occurrence: US)
  Receive Date: 20200917
  Receipt Date: 20200928
  Transmission Date: 20201103
  Serious: Yes (Hospitalization, Other)
  Sender: FDA-Public Use
  Company Number: US-PFIZER INC-2020341623

PATIENT
  Age: 33 Year
  Sex: Male

DRUGS (1)
  1. SULFAMETHOXAZOLE/TRIMETHOPRIM [Suspect]
     Active Substance: SULFAMETHOXAZOLE\TRIMETHOPRIM
     Indication: ANTIFUNGAL PROPHYLAXIS
     Dosage: 1 DOUBLE STRENGTH TABLET [160/800 MG] EVERY OTHER DAY

REACTIONS (8)
  - Rash [Recovered/Resolved]
  - Toxicity to various agents [Unknown]
  - Pyrexia [Recovered/Resolved]
  - Flushing [Unknown]
  - Erythema [Unknown]
  - Systemic inflammatory response syndrome [Unknown]
  - Chills [Unknown]
  - Malaise [Unknown]
